FAERS Safety Report 11771661 (Version 1)
Quarter: 2015Q4

REPORT INFORMATION
  Report Type: Spontaneous
  Country: US (occurrence: None)
  Receive Date: 20151120
  Receipt Date: 20151120
  Transmission Date: 20160304
  Serious: Yes (Life-Threatening)
  Sender: FDA-Public Use
  Company Number: 052642-2015-01

PATIENT
  Age: 61 Year
  Sex: Female
  Weight: 56.25 kg

DRUGS (2)
  1. RITE AID (MENTHOL) [Suspect]
     Active Substance: MENTHOL
     Indication: COUGH
     Route: 048
     Dates: start: 20150927
  2. IBANDRONATE SODDIUM [Concomitant]

REACTIONS (4)
  - Angioedema [None]
  - Glossodynia [None]
  - Application site pain [None]
  - Dyspnoea [None]

NARRATIVE: CASE EVENT DATE: 20150927
